FAERS Safety Report 20751120 (Version 3)
Quarter: 2023Q2

REPORT INFORMATION
  Report Type: Spontaneous
  Country: CA (occurrence: None)
  Receive Date: 20220426
  Receipt Date: 20230609
  Transmission Date: 20230722
  Serious: Yes (Hospitalization)
  Sender: FDA-Public Use
  Company Number: CA-ROCHE-3079076

PATIENT
  Age: 50 Year
  Sex: Male

DRUGS (4)
  1. OCRELIZUMAB [Suspect]
     Active Substance: OCRELIZUMAB
     Indication: Primary progressive multiple sclerosis
     Route: 042
  2. ACETAMINOPHEN [Concomitant]
     Active Substance: ACETAMINOPHEN
  3. BACLOFEN [Concomitant]
     Active Substance: BACLOFEN
     Indication: Muscle spasms
  4. MELATONIN [Concomitant]
     Active Substance: MELATONIN

REACTIONS (8)
  - Fatigue [Recovered/Resolved]
  - Initial insomnia [Recovered/Resolved]
  - Limb immobilisation [Recovered/Resolved]
  - Poor quality sleep [Recovered/Resolved]
  - Pyrexia [Recovered/Resolved]
  - Sensory loss [Recovered/Resolved]
  - COVID-19 [Recovered/Resolved]
  - Drug ineffective [Unknown]
